FAERS Safety Report 5072466-8 (Version None)
Quarter: 2006Q3

REPORT INFORMATION
  Report Type: 
  Country: None (occurrence: None)
  Receive Date: 20060807
  Receipt Date: 20060726
  Transmission Date: 20061208
  Serious: Yes (Other)
  Sender: FDA-Public Use
  Company Number: US-JNJFOC-20060503172

PATIENT
  Sex: Female
  Weight: 61.69 kg

DRUGS (7)
  1. TOPAMAX [Suspect]
     Indication: MIGRAINE
     Route: 048
  2. TOPAMAX [Suspect]
     Indication: CONVULSION
     Route: 048
  3. TEGRETOL [Concomitant]
     Indication: CONVULSION
     Dosage: 400 MG IN AM AND 500 MG IN PM
  4. ORAL CONTRACEPTIVES [Concomitant]
     Indication: MENSTRUATION IRREGULAR
  5. PROMETHAZINE [Concomitant]
     Dosage: PRN
  6. VERAPAMIL [Concomitant]
     Indication: MIGRAINE PROPHYLAXIS
     Dosage: AND 0.5 MG - 1 MG AS NECESSARY
  7. CELEXA [Concomitant]

REACTIONS (8)
  - BLINDNESS [None]
  - GLAUCOMA [None]
  - INTRAOCULAR PRESSURE INCREASED [None]
  - IRITIS [None]
  - KERATITIS [None]
  - MYOPIA [None]
  - OPTIC NERVE DISORDER [None]
  - VISION BLURRED [None]
